FAERS Safety Report 8310640-5 (Version None)
Quarter: 2012Q2

REPORT INFORMATION
  Report Type: 
  Country: None (occurrence: None)
  Receive Date: 20120425
  Receipt Date: 20120420
  Transmission Date: 20120825
  Serious: Yes (Hospitalization)
  Sender: FDA-Public Use
  Company Number: IT-ROCHE-1062041

PATIENT
  Sex: Female

DRUGS (14)
  1. ASPIRIN [Concomitant]
  2. XANAX [Suspect]
     Route: 048
     Dates: start: 20120414, end: 20120414
  3. CLONAZEPAM [Suspect]
     Route: 048
     Dates: start: 20120414, end: 20120414
  4. LYRICA [Concomitant]
     Route: 048
  5. ACETAMINOPHEN AND CODEINE PHOSPHATE [Suspect]
     Indication: INTENTIONAL SELF-INJURY
     Dosage: AS REQUIRED
  6. CLONAZEPAM [Suspect]
     Indication: INTENTIONAL SELF-INJURY
     Dosage: STARTED MORE OR LESS TWO MONTHS AGO
  7. ESCITALOPRAM [Suspect]
     Indication: INTENTIONAL SELF-INJURY
     Dosage: STARTED MORE OR LESS TWO MONTHS AGO
  8. ESCITALOPRAM [Suspect]
     Route: 048
     Dates: start: 20120414, end: 20120414
  9. DULOXETINE HYDROCHLORIDE [Concomitant]
     Dosage: STARTED MORE OR LESS TWO MONTHS AGO
  10. XANAX [Suspect]
     Indication: INTENTIONAL SELF-INJURY
     Dosage: STARTED MORE OR LESS TWO MONTHS AGO
  11. MINIAS [Suspect]
     Indication: INTENTIONAL SELF-INJURY
     Dosage: STARTED MORE OR LESS TWO MONTHS AGO
  12. MINIAS [Suspect]
     Route: 048
     Dates: start: 20120414, end: 20120414
  13. ACETAMINOPHEN AND CODEINE PHOSPHATE [Suspect]
     Dosage: FORM STRENGTH 500 MG + 30 MG
     Route: 048
     Dates: start: 20120414, end: 20120414
  14. DULOXETINE HYDROCHLORIDE [Concomitant]
     Dates: start: 20120414, end: 20120414

REACTIONS (2)
  - SOPOR [None]
  - BRADYPNOEA [None]
